FAERS Safety Report 9733516 (Version 2)
Quarter: 2014Q1

REPORT INFORMATION
  Report Type: Spontaneous
  Country: US (occurrence: US)
  Receive Date: 20131205
  Receipt Date: 20140110
  Transmission Date: 20141002
  Serious: Yes (Other)
  Sender: FDA-Public Use
  Company Number: US-ABBVIE-13P-163-1173662-00

PATIENT
  Age: 57 Year
  Sex: Male

DRUGS (2)
  1. ADALIMUMAB [Suspect]
     Indication: RHEUMATOID ARTHRITIS
     Route: 058
     Dates: start: 201111, end: 201202
  2. QUINAPRIL [Concomitant]
     Indication: HYPERTENSION

REACTIONS (3)
  - Diaphragmatic paralysis [Recovered/Resolved]
  - Granulomatous pneumonitis [Recovered/Resolved]
  - Demyelinating polyneuropathy [Recovered/Resolved]
